FAERS Safety Report 9107661 (Version 1)
Quarter: 2013Q1

REPORT INFORMATION
  Report Type: Spontaneous
  Country: FR (occurrence: FR)
  Receive Date: 20130221
  Receipt Date: 20130221
  Transmission Date: 20140127
  Serious: Yes (Hospitalization)
  Sender: FDA-Public Use
  Company Number: FR-ALLERGAN-1302360US

PATIENT
  Age: 75 Year
  Sex: Female

DRUGS (9)
  1. ACULAR [Suspect]
     Indication: CATARACT OPERATION
     Dosage: UNK
     Route: 047
     Dates: start: 20111209, end: 20111220
  2. TOBRADEX [Suspect]
     Indication: CATARACT OPERATION
     Dosage: UNK
     Dates: start: 20111209, end: 20111220
  3. MYDRIATICUM [Suspect]
     Indication: CATARACT OPERATION
     Dosage: UNK
     Dates: start: 20111209, end: 20111209
  4. STERIDOSE [Suspect]
     Indication: CATARACT OPERATION
     Dosage: UNK
     Dates: start: 20111209, end: 20111220
  5. DEXAFREE [Suspect]
     Indication: CATARACT OPERATION
     Dosage: UNK
     Dates: start: 20111220, end: 20111226
  6. LOCAPRED [Suspect]
     Indication: DERMATITIS CONTACT
     Dosage: UNK
     Dates: start: 20111220, end: 20111226
  7. BISOPROLOL [Concomitant]
     Indication: PRODUCT USED FOR UNKNOWN INDICATION
  8. LIPANTHYL [Concomitant]
     Indication: PRODUCT USED FOR UNKNOWN INDICATION
  9. IMOVANE [Concomitant]
     Indication: PRODUCT USED FOR UNKNOWN INDICATION

REACTIONS (1)
  - Dermatitis contact [Recovered/Resolved]
